FAERS Safety Report 5125951-4 (Version None)
Quarter: 2006Q4

REPORT INFORMATION
  Report Type: 
  Country: None (occurrence: None)
  Receive Date: 20061012
  Receipt Date: 20060726
  Transmission Date: 20070319
  Serious: Yes (Death, Other)
  Sender: FDA-Public Use
  Company Number: PHBS2006JP11279

PATIENT
  Age: 33 Year
  Sex: Male

DRUGS (5)
  1. NEORAL [Suspect]
     Indication: LIVER TRANSPLANT
     Dosage: 300 MG/DAY
     Route: 048
     Dates: start: 20060114
  2. TACROLIMUS [Suspect]
     Indication: LIVER TRANSPLANT
     Dosage: UNK, UNK
     Route: 065
     Dates: end: 20060114
  3. CELLCEPT [Concomitant]
     Indication: LIVER TRANSPLANT
     Dosage: 1250 MG/DAY
     Route: 048
     Dates: start: 20060114, end: 20060117
  4. PREDONINE [Concomitant]
     Dosage: 15 MG/DAY
     Route: 048
     Dates: start: 20060114, end: 20060116
  5. METHYLPREDNISOLONE [Concomitant]
     Dosage: 125 MG/DAY
     Route: 065
     Dates: start: 20060114, end: 20060116

REACTIONS (8)
  - ACIDOSIS [None]
  - CREATININE RENAL CLEARANCE DECREASED [None]
  - HEADACHE [None]
  - HEPATIC ARTERY THROMBOSIS [None]
  - PLATELET COUNT DECREASED [None]
  - RED BLOOD CELL SCHISTOCYTES PRESENT [None]
  - RENAL FAILURE [None]
  - THROMBOTIC MICROANGIOPATHY [None]
